FAERS Safety Report 4376292-4 (Version None)
Quarter: 2004Q2

REPORT INFORMATION
  Report Type: 
  Country: None (occurrence: None)
  Receive Date: 20040601
  Receipt Date: 20040401
  Transmission Date: 20050107
  Serious: No
  Sender: FDA-Public Use
  Company Number: 701830

PATIENT
  Age: 69 Year
  Sex: Female
  Weight: 83.9154 kg

DRUGS (2)
  1. AMEVIVE [Suspect]
     Indication: PSORIASIS
     Dosage: 15 MG QW IM
     Dates: start: 20040318
  2. COUMADIN [Concomitant]

REACTIONS (2)
  - INTERNATIONAL NORMALISED RATIO INCREASED [None]
  - PROTHROMBIN LEVEL INCREASED [None]
